FAERS Safety Report 25156236 (Version 1)
Quarter: 2025Q2

REPORT INFORMATION
  Report Type: Spontaneous
  Country: US (occurrence: US)
  Receive Date: 20250403
  Receipt Date: 20250403
  Transmission Date: 20250717
  Serious: No
  Sender: IPSEN
  Company Number: US-IPSEN Group, Research and Development-2025-07032

PATIENT
  Age: 31 Year
  Sex: Male
  Weight: 84.1 kg

DRUGS (2)
  1. TAZVERIK [Suspect]
     Active Substance: TAZEMETOSTAT HYDROBROMIDE
     Indication: Soft tissue sarcoma
     Dosage: 800 MG TWICE DAILY
     Route: 048
     Dates: start: 20210810
  2. ELIQUIS [Concomitant]
     Active Substance: APIXABAN

REACTIONS (2)
  - Blood urine present [Recovered/Resolved]
  - Product dose omission issue [Unknown]
